FAERS Safety Report 5021053-6 (Version None)
Quarter: 2006Q2

REPORT INFORMATION
  Report Type: 
  Country: None (occurrence: None)
  Receive Date: 20060605
  Receipt Date: 20060524
  Transmission Date: 20061013
  Serious: Yes (Hospitalization)
  Sender: FDA-Public Use
  Company Number: 2006067971

PATIENT
  Age: 59 Year
  Sex: Male
  Weight: 90.7194 kg

DRUGS (4)
  1. GEMFIBROZIL [Suspect]
     Indication: HYPERLIPIDAEMIA
     Dosage: 600 MG (PER DAY), ORAL
     Route: 048
  2. SIMVASTATIN [Suspect]
     Indication: HYPERLIPIDAEMIA
     Dosage: 80 MEQ (PER DAY), ORAL
     Route: 048
  3. PLACEBO (PLACEBO) [Suspect]
     Indication: CARDIOVASCULAR DISORDER
     Dosage: 0 MG (0 MG, 2 IN 1 D), ORAL
     Route: 048
     Dates: start: 20060108
  4. PLACEBO (PLACEBO) [Suspect]
     Indication: DIABETES MELLITUS NON-INSULIN-DEPENDENT
     Dosage: 0 MG (0 MG, 2 IN 1 D), ORAL
     Route: 048
     Dates: start: 20060108

REACTIONS (2)
  - RENAL FAILURE ACUTE [None]
  - RHABDOMYOLYSIS [None]
